FAERS Safety Report 11927610 (Version 1)
Quarter: 2016Q1

REPORT INFORMATION
  Report Type: Spontaneous
  Country: US (occurrence: US)
  Receive Date: 20160119
  Receipt Date: 20160119
  Transmission Date: 20160526
  Serious: No
  Sender: FDA-Public Use
  Company Number: US-PFIZER INC-2016025751

PATIENT
  Age: 64 Year
  Sex: Female
  Weight: 74.84 kg

DRUGS (1)
  1. GABAPENTIN. [Suspect]
     Active Substance: GABAPENTIN
     Dosage: 400 MG, DAILY
     Dates: start: 20151226

REACTIONS (2)
  - Tremor [Unknown]
  - Irritability [Unknown]
